FAERS Safety Report 9015415 (Version 1)
Quarter: 2013Q1

REPORT INFORMATION
  Report Type: Spontaneous
  Country: US (occurrence: None)
  Receive Date: 20130102
  Receipt Date: 20130102
  Transmission Date: 20140127
  Serious: Yes (Death, Hospitalization)
  Sender: FDA-Public Use
  Company Number: IMP_06126_2012

PATIENT
  Age: 49 Year
  Sex: Female

DRUGS (2)
  1. METFORMIN [Suspect]
     Indication: PRODUCT USED FOR UNKNOWN INDICATION
     Dosage: 60 TABLETS OF 500 MG ORAL
     Route: 048
  2. HYDROCHLOROTHIAZIDE W/LISINOPRIL [Suspect]
     Indication: PRODUCT USED FOR UNKNOWN INDICATION
     Dosage: 20-25 TABLETS OF 12.5 MG/20 MG ORAL
     Route: 048

REACTIONS (12)
  - Intentional drug misuse [None]
  - Nausea [None]
  - Vomiting [None]
  - Diarrhoea [None]
  - Heart rate increased [None]
  - Lactic acidosis [None]
  - Renal failure acute [None]
  - Blood glucose increased [None]
  - Depressed level of consciousness [None]
  - Blood pressure decreased [None]
  - Haemofiltration [None]
  - Pulseless electrical activity [None]
